FAERS Safety Report 18508578 (Version 3)
Quarter: 2020Q4

REPORT INFORMATION
  Report Type: Report from Study
  Country: None (occurrence: AE)
  Receive Date: 20201117
  Receipt Date: 20201224
  Transmission Date: 20210114
  Serious: No
  Sender: FDA-Public Use
  Company Number: AE-ABBVIE-20K-166-3652791-00

PATIENT
  Sex: Female

DRUGS (1)
  1. HUMIRA [Suspect]
     Active Substance: ADALIMUMAB
     Indication: RHEUMATOID ARTHRITIS
     Route: 058
     Dates: start: 20191103, end: 202010

REACTIONS (7)
  - Lymphocyte count increased [Unknown]
  - Intentional dose omission [Recovered/Resolved]
  - Fatigue [Recovered/Resolved]
  - Taste disorder [Recovered/Resolved]
  - Fibrin D dimer increased [Unknown]
  - COVID-19 [Recovering/Resolving]
  - White blood cell count increased [Unknown]

NARRATIVE: CASE EVENT DATE: 20201106
